FAERS Safety Report 9438395 (Version 1)
Quarter: 2013Q3

REPORT INFORMATION
  Report Type: Spontaneous
  Country: US (occurrence: None)
  Receive Date: 20130802
  Receipt Date: 20130802
  Transmission Date: 20140515
  Serious: Yes (Hospitalization)
  Sender: FDA-Public Use
  Company Number: None

PATIENT
  Sex: Male

DRUGS (1)
  1. SUTENT [Suspect]
     Dosage: ONE  QD  PO?~ 4 MONTHS
     Route: 048

REACTIONS (3)
  - Thrombocytopenia [None]
  - Haemorrhage [None]
  - Contusion [None]
